FAERS Safety Report 25426637 (Version 1)
Quarter: 2025Q2

REPORT INFORMATION
  Report Type: Spontaneous
  Country: US (occurrence: US)
  Receive Date: 20250612
  Receipt Date: 20250612
  Transmission Date: 20250716
  Serious: No
  Sender: ROCHE
  Company Number: US-ROCHE-10000305032

PATIENT
  Sex: Male

DRUGS (2)
  1. ESBRIET [Suspect]
     Active Substance: PIRFENIDONE
     Indication: Idiopathic pulmonary fibrosis
     Dosage: TAKE 1 TABLET BY MOUTH 3 TIMES A DAY FOR 7 DAYS, THEN TAKE 2 TABLET BY MOUTH 3 TIMES A DAY FOR 7 DAY
     Route: 048
  2. ESBRIET [Suspect]
     Active Substance: PIRFENIDONE
     Dosage: TAKE 1 TABLET BY MOUTH 3 TIMES A DAY FOR 7 DAYS, THEN TAKE 2 TABLET BY MOUTH 3 TIMES A DAY FOR 7 DAY
     Route: 048
     Dates: start: 202505

REACTIONS (3)
  - Nausea [Unknown]
  - Fatigue [Unknown]
  - Blood urine present [Unknown]
